FAERS Safety Report 8398500-5 (Version None)
Quarter: 2012Q2

REPORT INFORMATION
  Report Type: 
  Country: None (occurrence: None)
  Receive Date: 20120531
  Receipt Date: 20120529
  Transmission Date: 20120825
  Serious: Yes (Other)
  Sender: FDA-Public Use
  Company Number: DE-ROCHE-1026064

PATIENT
  Sex: Male

DRUGS (1)
  1. LARIAM [Suspect]
     Indication: MALARIA PROPHYLAXIS
     Route: 048
     Dates: end: 19920501

REACTIONS (5)
  - MATERNAL DRUGS AFFECTING FOETUS [None]
  - GASTROOESOPHAGEAL REFLUX DISEASE [None]
  - KIDNEY MALFORMATION [None]
  - ABDOMINAL DISCOMFORT [None]
  - IRRITABLE BOWEL SYNDROME [None]
